FAERS Safety Report 6263536-7 (Version None)
Quarter: 2009Q3

REPORT INFORMATION
  Report Type: 
  Country: None (occurrence: None)
  Receive Date: 20090710
  Receipt Date: 20090413
  Transmission Date: 20100115
  Serious: No
  Sender: FDA-Public Use
  Company Number: A0778418A

PATIENT
  Age: 57 Year
  Sex: Female

DRUGS (4)
  1. TYKERB [Suspect]
     Indication: BREAST CANCER
     Dosage: 1250MG PER DAY
     Route: 048
     Dates: start: 20080201
  2. XELODA [Concomitant]
  3. ZOMETA [Concomitant]
  4. VITAMIN B-12 [Concomitant]

REACTIONS (7)
  - DIZZINESS [None]
  - DRY THROAT [None]
  - DYSPEPSIA [None]
  - DYSPHAGIA [None]
  - PRURITUS [None]
  - RASH [None]
  - SKIN DISORDER [None]
